FAERS Safety Report 9076206 (Version 1)
Quarter: 2013Q1

REPORT INFORMATION
  Report Type: Report from Study
  Country: US (occurrence: US)
  Receive Date: 20130129
  Receipt Date: 20130129
  Transmission Date: 20140127
  Serious: No
  Sender: FDA-Public Use
  Company Number: US-ABBOTT-12P-163-0933612-00

PATIENT
  Age: 66 None
  Sex: Female
  Weight: 71.73 kg

DRUGS (4)
  1. HUMIRA 40 MG/ 0.8 ML PRE-FILLED SYRINGE [Suspect]
     Indication: RHEUMATOID ARTHRITIS
     Dates: start: 20120410
  2. HYDROCODONE [Concomitant]
     Indication: PRODUCT USED FOR UNKNOWN INDICATION
  3. LISINOPRIL [Concomitant]
     Indication: PRODUCT USED FOR UNKNOWN INDICATION
  4. SIMVASTATIN [Concomitant]
     Indication: PRODUCT USED FOR UNKNOWN INDICATION

REACTIONS (13)
  - Musculoskeletal stiffness [Unknown]
  - Headache [Recovered/Resolved]
  - Rash pruritic [Recovered/Resolved]
  - Nausea [Unknown]
  - Pain in extremity [Unknown]
  - Dyspnoea [Unknown]
  - Cough [Unknown]
  - Arthralgia [Unknown]
  - Joint stiffness [Unknown]
  - Arthropod bite [Recovered/Resolved]
  - Rash pruritic [Recovered/Resolved]
  - Injection site pain [Unknown]
  - Varicella [Recovered/Resolved]
